FAERS Safety Report 10776138 (Version 1)
Quarter: 2015Q1

REPORT INFORMATION
  Report Type: Spontaneous
  Country: US (occurrence: US)
  Receive Date: 20150209
  Receipt Date: 20150209
  Transmission Date: 20150721
  Serious: No
  Sender: FDA-Public Use
  Company Number: US-GLAXOSMITHKLINE-A1079357A

PATIENT

DRUGS (1)
  1. BENLYSTA [Suspect]
     Active Substance: BELIMUMAB
     Indication: SYSTEMIC LUPUS ERYTHEMATOSUS
     Dosage: 120 MG
     Route: 065
     Dates: start: 2012

REACTIONS (5)
  - Chest pain [Unknown]
  - Headache [Unknown]
  - Pain in extremity [Unknown]
  - Emphysema [Unknown]
  - Adverse drug reaction [Unknown]
